FAERS Safety Report 10765285 (Version 1)
Quarter: 2015Q1

REPORT INFORMATION
  Report Type: Spontaneous
  Country: NO (occurrence: NO)
  Receive Date: 20150205
  Receipt Date: 20150205
  Transmission Date: 20150721
  Serious: Yes (Other)
  Sender: FDA-Public Use
  Company Number: NO-ASTRAZENECA-2015SE09812

PATIENT
  Age: 80 Year
  Sex: Male

DRUGS (3)
  1. MEROPENEM. [Suspect]
     Active Substance: MEROPENEM
     Route: 042
  2. PIPERACILLIN (NON AZ DRUG) [Suspect]
     Active Substance: PIPERACILLIN
     Route: 065
  3. TAZOBACTAM (NON AZ DRUG) [Suspect]
     Active Substance: TAZOBACTAM
     Route: 065

REACTIONS (2)
  - Enterococcal infection [Recovered/Resolved]
  - Pathogen resistance [Not Recovered/Not Resolved]
